FAERS Safety Report 7772948-1 (Version None)
Quarter: 2011Q3

REPORT INFORMATION
  Report Type: 
  Country: None (occurrence: None)
  Receive Date: 20110922
  Receipt Date: 20110128
  Transmission Date: 20111222
  Serious: No
  Sender: FDA-Public Use
  Company Number: US-ASTRAZENECA-2011SE05207

PATIENT
  Age: 44 Year
  Sex: Female
  Weight: 97.5 kg

DRUGS (6)
  1. NEURONTIN [Concomitant]
  2. PROZAC [Concomitant]
  3. INSULIN [Concomitant]
  4. KLONOPIN [Concomitant]
  5. SEROQUEL [Suspect]
     Indication: SCHIZOPHRENIA
     Route: 048
  6. ABILIFY [Concomitant]

REACTIONS (5)
  - NASOPHARYNGITIS [None]
  - CONFUSIONAL STATE [None]
  - DIABETES MELLITUS [None]
  - MALAISE [None]
  - DRUG DOSE OMISSION [None]
